FAERS Safety Report 9853855 (Version 2)
Quarter: 2014Q1

REPORT INFORMATION
  Report Type: Report from Study
  Country: VE (occurrence: VE)
  Receive Date: 20140129
  Receipt Date: 20140129
  Transmission Date: 20141002
  Serious: Yes (Other)
  Sender: FDA-Public Use
  Company Number: VE-ABBVIE-13P-178-1043301-00

PATIENT
  Age: 50 Year
  Sex: Female
  Weight: 85 kg

DRUGS (2)
  1. HUMIRA [Suspect]
     Indication: RHEUMATOID ARTHRITIS
     Dosage: 1 PREFILLED SYRINGE
     Route: 058
     Dates: start: 2008, end: 201212
  2. HUMIRA [Suspect]
     Dates: start: 201307

REACTIONS (1)
  - Tuberculin test positive [Recovering/Resolving]
